FAERS Safety Report 9138019 (Version 1)
Quarter: 2013Q1

REPORT INFORMATION
  Report Type: Spontaneous
  Country: US (occurrence: US)
  Receive Date: 20130304
  Receipt Date: 20130304
  Transmission Date: 20140127
  Serious: Yes (Death)
  Sender: FDA-Public Use
  Company Number: US-ACTELION-A-US2013-79678

PATIENT
  Age: 64 Year
  Sex: Female

DRUGS (5)
  1. VELETRI [Suspect]
     Indication: PULMONARY ARTERIAL HYPERTENSION
     Dosage: UNK
     Route: 042
     Dates: start: 2012, end: 2012
  2. OXYGEN [Concomitant]
  3. REVATIO [Concomitant]
  4. AMBRISENTAN [Concomitant]
  5. LASIX [Concomitant]

REACTIONS (5)
  - Multi-organ failure [Fatal]
  - Pulmonary arterial hypertension [Fatal]
  - Disease progression [Fatal]
  - Renal failure [Fatal]
  - Right ventricular failure [Fatal]
